FAERS Safety Report 17499868 (Version 1)
Quarter: 2020Q1

REPORT INFORMATION
  Report Type: Report from Study
  Country: None (occurrence: JP)
  Receive Date: 20200305
  Receipt Date: 20200305
  Transmission Date: 20200409
  Serious: Yes (Other)
  Sender: FDA-Public Use
  Company Number: JP-ABBVIE-20K-087-3300758-00

PATIENT
  Sex: Female

DRUGS (3)
  1. HUMIRA [Suspect]
     Active Substance: ADALIMUMAB
     Route: 058
  2. HUMIRA [Suspect]
     Active Substance: ADALIMUMAB
     Indication: COLITIS ULCERATIVE
     Route: 058
     Dates: start: 2016
  3. HUMIRA [Suspect]
     Active Substance: ADALIMUMAB
     Route: 058
     Dates: start: 202002

REACTIONS (13)
  - Nasal discomfort [Unknown]
  - Injection site erythema [Not Recovered/Not Resolved]
  - Chills [Unknown]
  - Feeling hot [Unknown]
  - Malaise [Unknown]
  - Injection site pain [Unknown]
  - Pyrexia [Recovering/Resolving]
  - Intestinal haemorrhage [Unknown]
  - Malaise [Unknown]
  - Seasonal allergy [Unknown]
  - Nausea [Unknown]
  - Injection site swelling [Not Recovered/Not Resolved]
  - Sinusitis [Unknown]

NARRATIVE: CASE EVENT DATE: 2018
